FAERS Safety Report 11399882 (Version 1)
Quarter: 2015Q3

REPORT INFORMATION
  Report Type: Spontaneous
  Country: US (occurrence: None)
  Receive Date: 20150805
  Receipt Date: 20150805
  Transmission Date: 20151125
  Serious: Yes (Other)
  Sender: FDA-Public Use
  Company Number: GTI002419

PATIENT
  Age: 21 Year
  Sex: Female
  Weight: 49.9 kg

DRUGS (10)
  1. ZIANA [Concomitant]
     Active Substance: CLINDAMYCIN PHOSPHATE\TRETINOIN
  2. DIPHENHYDRAMINE. [Concomitant]
     Active Substance: DIPHENHYDRAMINE
  3. VIT. D [Concomitant]
  4. GAMUNEX-C [Suspect]
     Active Substance: HUMAN IMMUNOGLOBULIN G
     Indication: DERMATOMYOSITIS
     Route: 042
     Dates: start: 201206
  5. IBUPROFEN. [Concomitant]
     Active Substance: IBUPROFEN
  6. LOESTRIN NOS [Concomitant]
     Active Substance: ETHINYL ESTRADIOL\NORETHINDRONE ACETATE
  7. CALCIUM [Concomitant]
     Active Substance: CALCIUM
  8. PROVENTIL [Concomitant]
     Active Substance: ALBUTEROL
  9. ACZONE [Concomitant]
     Active Substance: DAPSONE
  10. PREDNISONE. [Concomitant]
     Active Substance: PREDNISONE

REACTIONS (3)
  - Cerebrovascular accident [None]
  - Fatigue [None]
  - Malaise [None]

NARRATIVE: CASE EVENT DATE: 20140710
